FAERS Safety Report 8215581-X (Version None)
Quarter: 2012Q1

REPORT INFORMATION
  Report Type: 
  Country: None (occurrence: None)
  Receive Date: 20120316
  Receipt Date: 20120305
  Transmission Date: 20120608
  Serious: Yes (Other)
  Sender: FDA-Public Use
  Company Number: US-ROCHE-1045813

PATIENT
  Sex: Male

DRUGS (3)
  1. RITUXAN [Suspect]
     Indication: LYMPHOMA
     Route: 042
  2. ACETAMINOPHEN [Concomitant]
  3. DIPHENHYDRAMINE HCL [Concomitant]
     Route: 042

REACTIONS (1)
  - HEART RATE DECREASED [None]
